FAERS Safety Report 7354361-4 (Version None)
Quarter: 2011Q1

REPORT INFORMATION
  Report Type: 
  Country: None (occurrence: None)
  Receive Date: 20110316
  Receipt Date: 20110307
  Transmission Date: 20110831
  Serious: Yes (Other)
  Sender: FDA-Public Use
  Company Number: US-JNJFOC-20110304179

PATIENT
  Age: 41 Year
  Sex: Male
  Weight: 113.4 kg

DRUGS (3)
  1. ALBUTEROL [Concomitant]
     Indication: PNEUMONIA
     Route: 048
  2. PREDNISONE [Concomitant]
     Indication: PNEUMONIA
     Route: 048
  3. LEVAQUIN [Suspect]
     Indication: PNEUMONIA
     Route: 048

REACTIONS (11)
  - COUGH [None]
  - CHILLS [None]
  - PYREXIA [None]
  - DEPRESSION [None]
  - OCULAR ICTERUS [None]
  - ANXIETY [None]
  - ORAL HERPES [None]
  - LOSS OF CONSCIOUSNESS [None]
  - SINUS OPERATION [None]
  - TREMOR [None]
  - PAIN [None]
